FAERS Safety Report 8661919 (Version 2)
Quarter: 2012Q4

REPORT INFORMATION
  Report Type: 
  Country: DE (occurrence: DE)
  Receive Date: 20120712
  Receipt Date: 20121022
  Transmission Date: 20130627
  Serious: Yes (Other)
  Sender: FDA-Public Use
  Company Number: DE-ASTRAZENECA-2012SE45849

PATIENT
  Age: 65 None
  Sex: Male

DRUGS (9)
  1. BRILIQUE [Suspect]
     Indication: ACUTE MYOCARDIAL INFARCTION
     Route: 048
     Dates: start: 20120317, end: 201203
  2. BRILIQUE [Suspect]
     Indication: THROMBOSIS PROPHYLAXIS
     Route: 048
     Dates: start: 20120317, end: 201203
  3. ASS [Concomitant]
     Indication: ACUTE MYOCARDIAL INFARCTION
     Route: 048
  4. ASS [Concomitant]
     Indication: THROMBOSIS PROPHYLAXIS
     Route: 048
  5. SIMVASTATIN [Concomitant]
     Route: 048
  6. LISINOPRIL [Concomitant]
     Route: 048
  7. NEBIVOLOL [Concomitant]
     Route: 048
  8. MOXONID [Concomitant]
     Route: 048
  9. METFORMIN [Concomitant]
     Route: 048

REACTIONS (2)
  - Thrombosis in device [Recovered/Resolved]
  - Rash [Recovered/Resolved]
